FAERS Safety Report 20803302 (Version 1)
Quarter: 2022Q2

REPORT INFORMATION
  Report Type: Spontaneous
  Country: US (occurrence: US)
  Receive Date: 20220509
  Receipt Date: 20220509
  Transmission Date: 20220720
  Serious: Yes (Other)
  Sender: FDA-Public Use
  Company Number: US-NOVARTISPH-NVSC2022US101708

PATIENT
  Sex: Female

DRUGS (2)
  1. COSENTYX [Suspect]
     Active Substance: SECUKINUMAB
     Indication: Product used for unknown indication
     Dosage: UNK
     Route: 065
  2. VITAMIN D2 [Concomitant]
     Active Substance: ERGOCALCIFEROL
     Indication: Product used for unknown indication
     Dosage: UNK, QW (50,000)
     Route: 065

REACTIONS (19)
  - Neoplasm malignant [Unknown]
  - Scoliosis [Not Recovered/Not Resolved]
  - Muscle strain [Not Recovered/Not Resolved]
  - Sciatic nerve injury [Unknown]
  - White blood cell count increased [Unknown]
  - Bone density decreased [Unknown]
  - Bowel movement irregularity [Unknown]
  - Weight decreased [Unknown]
  - Fatigue [Unknown]
  - Joint effusion [Unknown]
  - Pain in extremity [Unknown]
  - Nerve compression [Unknown]
  - Arthralgia [Unknown]
  - Neuralgia [Unknown]
  - Anxiety [Unknown]
  - Panic disorder [Unknown]
  - Feeling abnormal [Unknown]
  - Fear [Unknown]
  - Eye disorder [Unknown]
